FAERS Safety Report 5006570-7 (Version None)
Quarter: 2006Q2

REPORT INFORMATION
  Report Type: 
  Country: None (occurrence: None)
  Receive Date: 20060519
  Receipt Date: 20060516
  Transmission Date: 20061013
  Serious: Yes (Other)
  Sender: FDA-Public Use
  Company Number: 2006SE02784

PATIENT
  Age: 67 Year
  Sex: Female

DRUGS (6)
  1. AMIAS [Suspect]
     Indication: HYPERTENSION
     Route: 048
     Dates: start: 20060202, end: 20060222
  2. PROPRANOLOL [Concomitant]
     Indication: HEADACHE
     Route: 048
     Dates: start: 20021004
  3. GLUCOSAMINE [Concomitant]
     Indication: ARTHRITIS
     Route: 048
     Dates: start: 20050512
  4. CHONDROITIN [Concomitant]
     Indication: ARTHRITIS
     Route: 048
     Dates: start: 20050512
  5. ATORVASTATIN [Concomitant]
     Indication: LIPIDS INCREASED
     Route: 048
     Dates: start: 20051112
  6. LEVOCETIRIZINE [Concomitant]
     Indication: LATEX ALLERGY
     Route: 048
     Dates: start: 20051021

REACTIONS (3)
  - NAIL DISCOLOURATION [None]
  - RAYNAUD'S PHENOMENON [None]
  - RHINITIS [None]
